FAERS Safety Report 10236757 (Version 1)
Quarter: 2014Q2

REPORT INFORMATION
  Report Type: Spontaneous
  Country: FR (occurrence: FR)
  Receive Date: 20140613
  Receipt Date: 20140613
  Transmission Date: 20141212
  Serious: Yes (Hospitalization)
  Sender: FDA-Public Use
  Company Number: FR-GLAXOSMITHKLINE-B0999947A

PATIENT
  Age: 51 Year
  Sex: Female

DRUGS (10)
  1. DEROXAT [Suspect]
     Indication: PRODUCT USED FOR UNKNOWN INDICATION
     Route: 048
     Dates: start: 201401
  2. ZELITREX [Suspect]
     Indication: PRODUCT USED FOR UNKNOWN INDICATION
     Route: 048
     Dates: start: 201308
  3. NEORAL [Suspect]
     Indication: PRODUCT USED FOR UNKNOWN INDICATION
     Route: 048
     Dates: start: 20131201
  4. BACTRIM [Concomitant]
     Indication: PRODUCT USED FOR UNKNOWN INDICATION
     Route: 065
     Dates: start: 201308
  5. LEXOMIL [Concomitant]
     Indication: PRODUCT USED FOR UNKNOWN INDICATION
     Route: 065
     Dates: start: 201401
  6. CYTARABINE [Concomitant]
     Indication: CHEMOTHERAPY
     Route: 065
     Dates: start: 20130814
  7. METHOTREXATE [Concomitant]
     Indication: CHEMOTHERAPY
     Route: 065
     Dates: start: 20130814
  8. DAUNORUBICINE [Concomitant]
     Indication: CHEMOTHERAPY
     Route: 037
  9. VINCRISTINE [Concomitant]
     Indication: CHEMOTHERAPY
     Route: 037
  10. CYCLOPHOSPHAMIDE [Concomitant]
     Indication: CHEMOTHERAPY
     Route: 037

REACTIONS (2)
  - Cerebellar syndrome [Not Recovered/Not Resolved]
  - Extrapyramidal disorder [Not Recovered/Not Resolved]
